FAERS Safety Report 4693161-0 (Version None)
Quarter: 2005Q2

REPORT INFORMATION
  Report Type: 
  Country: None (occurrence: None)
  Receive Date: 20050617
  Receipt Date: 20050607
  Transmission Date: 20051028
  Serious: Yes (Life-Threatening, Other)
  Sender: FDA-Public Use
  Company Number: GB-JNJFOC-20050507144

PATIENT
  Sex: Male
  Weight: 95.5 kg

DRUGS (4)
  1. DURAGESIC-100 [Suspect]
     Route: 062
  2. DURAGESIC-100 [Suspect]
     Indication: PAIN
     Route: 062
  3. BETAHISTINE [Concomitant]
     Route: 065
  4. PROCHLORPERAZINE MALEATE [Concomitant]
     Route: 065

REACTIONS (6)
  - DYSPNOEA [None]
  - HAEMATOTOXICITY [None]
  - HEADACHE [None]
  - MUSCLE TIGHTNESS [None]
  - PHARMACEUTICAL PRODUCT COMPLAINT [None]
  - VOMITING [None]
